FAERS Safety Report 11906614 (Version 1)
Quarter: 2016Q1

REPORT INFORMATION
  Report Type: Spontaneous
  Country: US (occurrence: None)
  Receive Date: 20160108
  Receipt Date: 20160108
  Transmission Date: 20160526
  Serious: No
  Sender: FDA-Public Use
  Company Number: None

PATIENT
  Age: 43 Year
  Sex: Female

DRUGS (5)
  1. GARCINIA CAM [Concomitant]
  2. BLACK COHOSH [Concomitant]
     Active Substance: BLACK COHOSH
  3. OMEPRAZOLE. [Concomitant]
     Active Substance: OMEPRAZOLE
  4. ANASTROZOLE. [Suspect]
     Active Substance: ANASTROZOLE
     Indication: NEOPLASM MALIGNANT
     Route: 048
     Dates: start: 20140902
  5. LUPRON DEPOT [Concomitant]
     Active Substance: LEUPROLIDE ACETATE

REACTIONS (2)
  - Drug dose omission [None]
  - No adverse event [None]

NARRATIVE: CASE EVENT DATE: 201601
